FAERS Safety Report 9644072 (Version 1)
Quarter: 2013Q4

REPORT INFORMATION
  Report Type: Spontaneous
  Country: GB (occurrence: GB)
  Receive Date: 20131024
  Receipt Date: 20131024
  Transmission Date: 20140711
  Serious: Yes (Hospitalization)
  Sender: FDA-Public Use
  Company Number: GB-MYLANLABS-2013S1023315

PATIENT
  Age: 54 Year
  Sex: Male

DRUGS (8)
  1. QUININE [Suspect]
     Indication: MUSCLE SPASMS
     Route: 048
     Dates: end: 20130711
  2. PHENOXYMETHYLPENICILLIN [Suspect]
     Indication: FATIGUE
     Route: 048
     Dates: start: 201307, end: 20130711
  3. PHENOXYMETHYLPENICILLIN [Suspect]
     Indication: OROPHARYNGEAL PAIN
     Route: 048
     Dates: start: 201307, end: 20130711
  4. PHENOXYMETHYLPENICILLIN [Suspect]
     Indication: DYSPHAGIA
     Route: 048
     Dates: start: 201307, end: 20130711
  5. AMITRIPTYLINE [Concomitant]
     Indication: PRODUCT USED FOR UNKNOWN INDICATION
  6. HUMALOG [Concomitant]
     Indication: PRODUCT USED FOR UNKNOWN INDICATION
  7. LANTUS [Concomitant]
     Indication: PRODUCT USED FOR UNKNOWN INDICATION
  8. METFORMIN [Concomitant]
     Indication: PRODUCT USED FOR UNKNOWN INDICATION

REACTIONS (2)
  - Agranulocytosis [Recovered/Resolved]
  - Thrombocytosis [Unknown]
